FAERS Safety Report 12037356 (Version 3)
Quarter: 2016Q3

REPORT INFORMATION
  Report Type: Spontaneous
  Country: GB (occurrence: GB)
  Receive Date: 20160208
  Receipt Date: 20160901
  Transmission Date: 20161109
  Serious: Yes (Death, Hospitalization, Other)
  Sender: FDA-Public Use
  Company Number: GB-BRISTOL-MYERS SQUIBB COMPANY-BMS-2016-007232

PATIENT
  Age: 69 Year
  Sex: Male

DRUGS (7)
  1. APIXABAN [Suspect]
     Active Substance: APIXABAN
     Indication: THROMBOSIS PROPHYLAXIS
  2. CLEXANE [Suspect]
     Active Substance: ENOXAPARIN SODIUM
     Indication: PRODUCT USED FOR UNKNOWN INDICATION
     Dosage: UNK
     Route: 065
  3. CLOPIDOGREL [Concomitant]
     Active Substance: CLOPIDOGREL BISULFATE
     Indication: PRODUCT USED FOR UNKNOWN INDICATION
     Dosage: 75 MG, UNK
     Route: 065
  4. SIMVASTATIN. [Concomitant]
     Active Substance: SIMVASTATIN
     Indication: CEREBROVASCULAR ACCIDENT
     Dosage: 40 MG, UNK
     Route: 048
  5. APIXABAN [Suspect]
     Active Substance: APIXABAN
     Indication: CEREBROVASCULAR ACCIDENT PROPHYLAXIS
     Dosage: 5 MG, BID
     Route: 048
  6. TAZOCIN [Concomitant]
     Active Substance: PIPERACILLIN SODIUM\TAZOBACTAM SODIUM
     Indication: PNEUMONIA
     Dosage: 4.5 G, TID
     Route: 042
  7. DOXYCYCLINE. [Concomitant]
     Active Substance: DOXYCYCLINE
     Indication: PRODUCT USED FOR UNKNOWN INDICATION
     Route: 065

REACTIONS (4)
  - Bronchial carcinoma [Not Recovered/Not Resolved]
  - Contraindicated product administered [Unknown]
  - Pulmonary embolism [Fatal]
  - Pneumonia [Fatal]

NARRATIVE: CASE EVENT DATE: 20160127
